FAERS Safety Report 18780239 (Version 1)
Quarter: 2021Q1

REPORT INFORMATION
  Report Type: Spontaneous
  Country: US (occurrence: US)
  Receive Date: 20210125
  Receipt Date: 20210125
  Transmission Date: 20210419
  Serious: Yes (Other)
  Sender: FDA-Public Use
  Company Number: None

PATIENT
  Age: 63 Year
  Sex: Male

DRUGS (1)
  1. PURELL ADVANCED HAND SANITIZIER GEL [Suspect]
     Active Substance: ALCOHOL

REACTIONS (2)
  - Application site burn [None]
  - Limb injury [None]

NARRATIVE: CASE EVENT DATE: 20210123
